FAERS Safety Report 4789304-0 (Version None)
Quarter: 2005Q3

REPORT INFORMATION
  Report Type: 
  Country: None (occurrence: None)
  Receive Date: 20050929
  Receipt Date: 20050822
  Transmission Date: 20060218
  Serious: No
  Sender: FDA-Public Use
  Company Number: 05P-163-0308868-00

PATIENT
  Age: 71 Year
  Sex: Female
  Weight: 65.7716 kg

DRUGS (11)
  1. HUMIRA [Suspect]
     Indication: RHEUMATOID ARTHRITIS
     Dosage: 40 MG, 1IN 2 WK, SUBCUTANEOUS
     Route: 058
     Dates: start: 20030501
  2. CLOPIDOGREL BISULFATE [Concomitant]
  3. TOPROL-XL [Concomitant]
  4. OXYBUTYNIN HYDROCHLORIDE [Concomitant]
  5. PANTOPRAZOLE [Concomitant]
  6. DILTIAZEM [Concomitant]
  7. HYDROXYCHLOROQUINE PHOSPHATE [Concomitant]
  8. SULFASALAZINE [Concomitant]
  9. PREDNISONE TAB [Concomitant]
  10. MULTI-VITAMINS [Concomitant]
  11. FOLIC ACID [Concomitant]

REACTIONS (1)
  - DRUG EFFECT DECREASED [None]
